FAERS Safety Report 13021504 (Version 1)
Quarter: 2016Q4

REPORT INFORMATION
  Report Type: Spontaneous
  Country: IT (occurrence: IT)
  Receive Date: 20161213
  Receipt Date: 20161213
  Transmission Date: 20170207
  Serious: Yes (Hospitalization)
  Sender: FDA-Public Use
  Company Number: IT-ASTRAZENECA-2016SF29401

PATIENT
  Age: 25116 Day
  Sex: Female

DRUGS (6)
  1. ARIMIDEX [Suspect]
     Active Substance: ANASTROZOLE
     Dosage: UNKNOWN
     Route: 048
  2. TAMOXIFEN CITRATE. [Suspect]
     Active Substance: TAMOXIFEN CITRATE
     Dosage: UNKNOWN
     Route: 048
  3. CLOPIDOGREL [Suspect]
     Active Substance: CLOPIDOGREL BISULFATE
     Dosage: UNKNOWN
     Route: 065
  4. ZOPRANOL [Suspect]
     Active Substance: ZOFENOPRIL
     Dosage: UNKNOWN
     Route: 065
  5. EZETIMIBE. [Suspect]
     Active Substance: EZETIMIBE
     Dosage: UNKNOWN
     Route: 065
  6. ASA [Suspect]
     Active Substance: ASPIRIN
     Dosage: UNKNOWN
     Route: 065

REACTIONS (5)
  - Gait disturbance [Unknown]
  - Asthenia [Unknown]
  - Anaemia [Unknown]
  - Gastritis [Unknown]
  - Duodenitis [Unknown]

NARRATIVE: CASE EVENT DATE: 20160404
